FAERS Safety Report 9812950 (Version 4)
Quarter: 2015Q1

REPORT INFORMATION
  Report Type: Spontaneous
  Country: US (occurrence: US)
  Receive Date: 20140113
  Receipt Date: 20150126
  Transmission Date: 20150721
  Serious: Yes (Hospitalization)
  Sender: FDA-Public Use
  Company Number: US-009507513-1401USA001375

PATIENT
  Sex: Male
  Weight: 106.58 kg

DRUGS (2)
  1. PROPECIA [Suspect]
     Active Substance: FINASTERIDE
     Dosage: 1 MG, QD
     Route: 048
     Dates: start: 20100524, end: 2012
  2. PROPECIA [Suspect]
     Active Substance: FINASTERIDE
     Indication: ANDROGENETIC ALOPECIA
     Dosage: 1 MG, QD
     Route: 048

REACTIONS (34)
  - Hypogonadism male [Not Recovered/Not Resolved]
  - Affective disorder [Not Recovered/Not Resolved]
  - Androgen deficiency [Not Recovered/Not Resolved]
  - Increased appetite [Unknown]
  - Anxiety [Not Recovered/Not Resolved]
  - Attention deficit/hyperactivity disorder [Unknown]
  - Nephrolithiasis [Unknown]
  - Libido decreased [Not Recovered/Not Resolved]
  - Testicular atrophy [Unknown]
  - Renal disorder [Unknown]
  - Sexual dysfunction [Not Recovered/Not Resolved]
  - Haematuria [Unknown]
  - Testicular failure [Unknown]
  - Fatigue [Not Recovered/Not Resolved]
  - Nephrolithiasis [Not Recovered/Not Resolved]
  - Hyperlipidaemia [Unknown]
  - Snoring [Unknown]
  - Insomnia [Unknown]
  - Flank pain [Unknown]
  - Obesity surgery [Unknown]
  - Cognitive disorder [Not Recovered/Not Resolved]
  - Hypertension [Not Recovered/Not Resolved]
  - Renal colic [Unknown]
  - Sleep apnoea syndrome [Unknown]
  - Erectile dysfunction [Not Recovered/Not Resolved]
  - Testicular pain [Unknown]
  - Perineal cyst [Unknown]
  - Depression [Not Recovered/Not Resolved]
  - Terminal dribbling [Unknown]
  - Hernia [Unknown]
  - Semen volume abnormal [Unknown]
  - Ureteral disorder [Unknown]
  - Major depression [Unknown]
  - Weight increased [Unknown]

NARRATIVE: CASE EVENT DATE: 2001
